FAERS Safety Report 12310727 (Version 11)
Quarter: 2018Q3

REPORT INFORMATION
  Report Type: Spontaneous
  Country: US (occurrence: US)
  Receive Date: 20160427
  Receipt Date: 20180928
  Transmission Date: 20181010
  Serious: No
  Sender: FDA-Public Use
  Company Number: US-ACTELION PHARMACEUTICALS US, INC.-A-US2016-135209

PATIENT
  Age: 82 Year
  Sex: Female

DRUGS (18)
  1. VALSARTAN. [Concomitant]
     Active Substance: VALSARTAN
  2. GLIMEPIRIDE. [Concomitant]
     Active Substance: GLIMEPIRIDE
  3. HYDROCHLOROTHIAZIDE. [Concomitant]
     Active Substance: HYDROCHLOROTHIAZIDE
  4. FLUTICASONE. [Concomitant]
     Active Substance: FLUTICASONE
  5. ATENOLOL. [Concomitant]
     Active Substance: ATENOLOL
     Dosage: 50 MG, QD
  6. OPSUMIT [Suspect]
     Active Substance: MACITENTAN
     Dosage: 10 MG, QD
     Route: 048
  7. MULTAQ [Concomitant]
     Active Substance: DRONEDARONE
  8. ASPIRIN. [Concomitant]
     Active Substance: ASPIRIN
  9. NORVASC [Concomitant]
     Active Substance: AMLODIPINE BESYLATE
  10. OPSUMIT [Suspect]
     Active Substance: MACITENTAN
     Indication: PULMONARY ARTERIAL HYPERTENSION
     Dosage: 10 MG, QD
     Route: 048
     Dates: start: 20160401
  11. OMEPRAZOLE. [Concomitant]
     Active Substance: OMEPRAZOLE
  12. METOPROLOL. [Concomitant]
     Active Substance: METOPROLOL
  13. IRBESARTAN. [Concomitant]
     Active Substance: IRBESARTAN
  14. TRADJENTA [Concomitant]
     Active Substance: LINAGLIPTIN
  15. LEVALBUTEROL. [Concomitant]
     Active Substance: LEVALBUTEROL
  16. LUMIGAN [Concomitant]
     Active Substance: BIMATOPROST
  17. PREDNISONE. [Concomitant]
     Active Substance: PREDNISONE
  18. SE TAN PLUS [Concomitant]

REACTIONS (20)
  - Heart rate decreased [Not Recovered/Not Resolved]
  - Somnolence [Not Recovered/Not Resolved]
  - Blood creatinine increased [Not Recovered/Not Resolved]
  - Condition aggravated [Not Recovered/Not Resolved]
  - Food poisoning [Recovered/Resolved]
  - Haemoglobin decreased [Recovered/Resolved]
  - Dyspnoea [Recovered/Resolved]
  - Fatigue [Recovering/Resolving]
  - Diarrhoea [Recovered/Resolved]
  - Oedema peripheral [Not Recovered/Not Resolved]
  - Pulmonary arterial pressure increased [Unknown]
  - Memory impairment [Unknown]
  - Drug dose omission [Unknown]
  - Chest discomfort [Recovering/Resolving]
  - Hypotension [Recovered/Resolved]
  - Fluid retention [Unknown]
  - Rash [Not Recovered/Not Resolved]
  - Chills [Recovered/Resolved]
  - Dizziness [Recovered/Resolved]
  - Dysphonia [Recovering/Resolving]

NARRATIVE: CASE EVENT DATE: 20160406
